FAERS Safety Report 9531685 (Version 1)
Quarter: 2013Q3

REPORT INFORMATION
  Report Type: Spontaneous
  Country: US (occurrence: None)
  Receive Date: 20130917
  Receipt Date: 20130917
  Transmission Date: 20140515
  Serious: Yes (Hospitalization)
  Sender: FDA-Public Use
  Company Number: None

PATIENT
  Age: 66 Year
  Sex: Female
  Weight: 81.65 kg

DRUGS (5)
  1. SEVOFLURANE [Suspect]
     Indication: ANAESTHESIA
     Dates: start: 20130830
  2. PROPOFOL [Concomitant]
  3. CEFAZOLIN [Concomitant]
  4. ONDANSETRON [Concomitant]
  5. HYDROMORPHONE [Concomitant]

REACTIONS (3)
  - Erythema [None]
  - Swelling [None]
  - Eyelid oedema [None]
